FAERS Safety Report 13045265 (Version 2)
Quarter: 2017Q1

REPORT INFORMATION
  Report Type: Report from Study
  Country: US (occurrence: US)
  Receive Date: 20161220
  Receipt Date: 20170118
  Transmission Date: 20170428
  Serious: No
  Sender: FDA-Public Use
  Company Number: US-AMGEN-USASL2016178434

PATIENT
  Age: 9 Year
  Sex: Male

DRUGS (1)
  1. ENBREL [Suspect]
     Active Substance: ETANERCEPT
     Indication: JUVENILE IDIOPATHIC ARTHRITIS
     Dosage: 25 MG, EVERY 5 DAYS
     Route: 065

REACTIONS (5)
  - Back disorder [Unknown]
  - Spinal disorder [Unknown]
  - Off label use [Unknown]
  - Drug dose omission [Unknown]
  - Therapy non-responder [Unknown]
